FAERS Safety Report 4611322-3 (Version None)
Quarter: 2005Q2

REPORT INFORMATION
  Report Type: 
  Country: None (occurrence: None)
  Receive Date: 20050311
  Receipt Date: 20041116
  Transmission Date: 20051028
  Serious: No
  Sender: FDA-Public Use
  Company Number: 2004-BP-10867BP

PATIENT
  Age: 64 Year
  Sex: Male

DRUGS (4)
  1. SPIRIVA [Suspect]
     Indication: ASTHMA
     Dosage: (18 MCG),IH
     Dates: start: 20040909, end: 20041001
  2. SPIRIVA [Suspect]
     Indication: CHRONIC OBSTRUCTIVE PULMONARY DISEASE
     Dosage: (18 MCG),IH
     Dates: start: 20040909, end: 20041001
  3. SINGULAIR (MONTELUKAST) [Concomitant]
  4. MAVIK [Concomitant]

REACTIONS (1)
  - DYSPNOEA EXACERBATED [None]
